FAERS Safety Report 9118508 (Version 1)
Quarter: 2013Q1

REPORT INFORMATION
  Report Type: Spontaneous
  Country: US (occurrence: US)
  Receive Date: 20130219
  Receipt Date: 20130219
  Transmission Date: 20140127
  Serious: No
  Sender: FDA-Public Use
  Company Number: US-BRISTOL-MYERS SQUIBB COMPANY-17166273

PATIENT
  Age: 59 Year
  Sex: Female
  Weight: 72.56 kg

DRUGS (1)
  1. ORENCIA [Suspect]
     Indication: RHEUMATOID ARTHRITIS
     Dosage: LAST INF:15NOV2012
     Route: 042

REACTIONS (3)
  - Vision blurred [Unknown]
  - Lacrimation increased [Unknown]
  - Pain [Unknown]
